FAERS Safety Report 5709611-4 (Version None)
Quarter: 2008Q2

REPORT INFORMATION
  Report Type: 
  Country: None (occurrence: None)
  Receive Date: 20080418
  Receipt Date: 20080403
  Transmission Date: 20081010
  Serious: Yes (Congenital Anomaly)
  Sender: FDA-Public Use
  Company Number: A0723676A

PATIENT
  Age: 0 Year
  Sex: Female

DRUGS (1)
  1. PAXIL [Suspect]
     Indication: DEPRESSION
     Route: 048

REACTIONS (4)
  - ATRIAL SEPTAL DEFECT [None]
  - CONGENITAL ANOMALY [None]
  - PULMONARY HYPERTENSION [None]
  - RESPIRATORY FAILURE [None]
